FAERS Safety Report 9193944 (Version 1)
Quarter: 2013Q1

REPORT INFORMATION
  Report Type: Spontaneous
  Country: US (occurrence: US)
  Receive Date: 20130327
  Receipt Date: 20130327
  Transmission Date: 20140127
  Serious: Yes (Other)
  Sender: FDA-Public Use
  Company Number: CHPA2013US005228

PATIENT
  Age: 84 Year
  Sex: Female

DRUGS (2)
  1. EX-LAX REG STR CHOCOLATED LAX PCS SEN [Suspect]
     Dosage: 2 DF, ONCE/SINGLE
     Dates: start: 20130321
  2. EX-LAX REG STR CHOCOLATED LAX PCS SEN [Suspect]
     Dosage: UNK, UNK

REACTIONS (9)
  - Pain [Recovered/Resolved]
  - Hyperhidrosis [Recovered/Resolved]
  - Dizziness [Recovered/Resolved]
  - Feeling abnormal [Recovered/Resolved]
  - Syncope [Recovered/Resolved]
  - Asthenia [Recovered/Resolved]
  - Gait disturbance [Recovered/Resolved]
  - Diarrhoea [Recovered/Resolved]
  - Fatigue [Unknown]
